FAERS Safety Report 5486165-1 (Version None)
Quarter: 2007Q4

REPORT INFORMATION
  Report Type: 
  Country: None (occurrence: None)
  Receive Date: 20071012
  Receipt Date: 20070907
  Transmission Date: 20080405
  Serious: Yes (Other)
  Sender: FDA-Public Use
  Company Number: STI-2007-01538

PATIENT
  Age: 74 Year
  Sex: Female

DRUGS (3)
  1. BETAMETHASONE [Suspect]
     Indication: RASH
     Dosage: ARMS; FACE NECK
  2. BETAMETHASONE [Suspect]
     Indication: RASH
     Dosage: ARMS; FACE NECK
  3. CORTICOSTEROID INJECTIONS (CORTICOSTEROID NOS) [Suspect]
     Indication: RASH
     Dosage: INTRAMUSCULAR
     Route: 030

REACTIONS (4)
  - BURNING SENSATION [None]
  - DERMATITIS [None]
  - DRUG DEPENDENCE [None]
  - DRUG WITHDRAWAL SYNDROME [None]
